FAERS Safety Report 23569896 (Version 1)
Quarter: 2024Q1

REPORT INFORMATION
  Report Type: Spontaneous
  Country: US (occurrence: None)
  Receive Date: 20240226
  Receipt Date: 20240226
  Transmission Date: 20240410
  Serious: Yes (Other)
  Sender: FDA-Public Use
  Company Number: None

PATIENT
  Age: 35 Year
  Sex: Female
  Weight: 63 kg

DRUGS (5)
  1. ATOMOXETINE [Suspect]
     Active Substance: ATOMOXETINE
     Indication: Attention deficit hyperactivity disorder
     Dosage: OTHER QUANTITY : 1 CAPSULE(S);?FREQUENCY : DAILY;?
     Route: 048
     Dates: start: 20230220, end: 20240216
  2. IBUPROFEN [Concomitant]
     Active Substance: IBUPROFEN
  3. Robaxin 500mg [Concomitant]
  4. FLEXERIL [Concomitant]
     Active Substance: CYCLOBENZAPRINE HYDROCHLORIDE
  5. Ubrelvy 100mg [Concomitant]

REACTIONS (2)
  - Menstruation irregular [None]
  - Heavy menstrual bleeding [None]

NARRATIVE: CASE EVENT DATE: 20230815
